FAERS Safety Report 18592118 (Version 1)
Quarter: 2020Q4

REPORT INFORMATION
  Report Type: Spontaneous
  Country: CN (occurrence: CN)
  Receive Date: 20201208
  Receipt Date: 20201208
  Transmission Date: 20210114
  Serious: Yes (Other)
  Sender: FDA-Public Use
  Company Number: CN-PFIZER INC-2020479803

PATIENT
  Age: 59 Year
  Sex: Male
  Weight: 70 kg

DRUGS (2)
  1. GLUCOSE [Concomitant]
     Active Substance: DEXTROSE
     Indication: ACUTE MYELOID LEUKAEMIA
     Dosage: 250 ML, 1X/DAY
     Route: 041
     Dates: start: 20201121, end: 20201127
  2. CYTARABINE. [Suspect]
     Active Substance: CYTARABINE
     Indication: ACUTE MYELOID LEUKAEMIA
     Dosage: 0.15 G, 1X/DAY
     Route: 041
     Dates: start: 20201121

REACTIONS (2)
  - Drug eruption [Recovered/Resolved]
  - Macule [Recovered/Resolved]

NARRATIVE: CASE EVENT DATE: 20201121
